FAERS Safety Report 20536258 (Version 1)
Quarter: 2022Q1

REPORT INFORMATION
  Report Type: Spontaneous
  Country: FR (occurrence: FR)
  Receive Date: 20220302
  Receipt Date: 20220302
  Transmission Date: 20220424
  Serious: Yes (Disabling, Congenital Anomaly, Other)
  Sender: FDA-Public Use
  Company Number: FR-ABBVIE-22K-056-4297817-00

PATIENT
  Sex: Female
  Weight: 2.78 kg

DRUGS (2)
  1. VALPROATE SODIUM [Suspect]
     Active Substance: VALPROATE SODIUM
     Indication: Maternal exposure timing unspecified
     Route: 064
  2. FOLIC ACID [Concomitant]
     Active Substance: FOLIC ACID
     Indication: Product used for unknown indication

REACTIONS (30)
  - Dyslexia [Unknown]
  - Congenital flat feet [Unknown]
  - Joint laxity [Unknown]
  - Dysgraphia [Unknown]
  - Knee deformity [Unknown]
  - Language disorder [Unknown]
  - Learning disorder [Unknown]
  - Memory impairment [Unknown]
  - Astigmatism [Unknown]
  - Tendon pain [Unknown]
  - Somnambulism [Unknown]
  - Anxiety [Unknown]
  - Adenoidal hypertrophy [Unknown]
  - Movement disorder [Unknown]
  - Pain [Unknown]
  - Spine malformation [Unknown]
  - Arthralgia [Unknown]
  - Bone disorder [Unknown]
  - Joint dislocation [Unknown]
  - Reading disorder [Unknown]
  - Elbow deformity [Unknown]
  - Angina pectoris [Unknown]
  - Amygdalotomy [Unknown]
  - Bronchitis [Unknown]
  - Ear infection [Unknown]
  - Pharyngitis [Unknown]
  - Nasopharyngitis [Unknown]
  - Sleep disorder [Unknown]
  - Laryngitis [Unknown]
  - Foetal exposure during pregnancy [Unknown]

NARRATIVE: CASE EVENT DATE: 20161001
